FAERS Safety Report 11091236 (Version 3)
Quarter: 2015Q2

REPORT INFORMATION
  Report Type: Spontaneous
  Country: US (occurrence: US)
  Receive Date: 20150505
  Receipt Date: 20150616
  Transmission Date: 20150821
  Serious: Yes (Other)
  Sender: FDA-Public Use
  Company Number: US-PFIZER INC-2015152151

PATIENT
  Age: 2 Year
  Sex: Male
  Weight: 12 kg

DRUGS (5)
  1. VITAMIN D [Concomitant]
     Active Substance: CHOLECALCIFEROL
  2. GENOTROPIN MQ [Suspect]
     Active Substance: SOMATROPIN
     Indication: GROWTH HORMONE DEFICIENCY
     Dosage: 0.6 MG, 1X/DAY (6 DAYS A WEEK)
     Route: 058
     Dates: start: 201504
  3. ASCORBIC ACID. [Concomitant]
     Active Substance: ASCORBIC ACID
  4. LEVALBUTEROL [Concomitant]
     Active Substance: LEVALBUTEROL
  5. OMEGA 3 [Concomitant]
     Active Substance: OMEGA-3 FATTY ACIDS

REACTIONS (8)
  - Pyrexia [Unknown]
  - Oropharyngeal pain [Recovered/Resolved]
  - Vomiting [Unknown]
  - Cough [Unknown]
  - Tonsillitis [Unknown]
  - Upper respiratory tract infection [Unknown]
  - Ear pain [Unknown]
  - Bowel movement irregularity [Unknown]

NARRATIVE: CASE EVENT DATE: 201504
